FAERS Safety Report 7376100-3 (Version None)
Quarter: 2011Q1

REPORT INFORMATION
  Report Type: 
  Country: None (occurrence: None)
  Receive Date: 20110325
  Receipt Date: 20110316
  Transmission Date: 20110831
  Serious: Yes (Hospitalization)
  Sender: FDA-Public Use
  Company Number: NL-MEDIMMUNE-MEDI-0012947

PATIENT
  Sex: Female
  Weight: 8.9 kg

DRUGS (9)
  1. CAPTOPRIL [Concomitant]
  2. CARBASALATE CALCIUM [Concomitant]
  3. CARVEDILOL [Concomitant]
  4. FUROSEMIDE [Concomitant]
  5. SALBUTAMOL [Concomitant]
     Route: 055
  6. SYNAGIS [Suspect]
     Route: 030
     Dates: start: 20110316, end: 20110316
  7. SYNAGIS [Suspect]
     Route: 030
     Dates: start: 20100906, end: 20110216
  8. SPIRONOLACTONE [Concomitant]
  9. MACROGOL [Concomitant]

REACTIONS (4)
  - INFANTILE SPITTING UP [None]
  - PYREXIA [None]
  - DYSPNOEA [None]
  - LISTLESS [None]
